FAERS Safety Report 8941795 (Version 1)
Quarter: 2012Q4

REPORT INFORMATION
  Report Type: 
  Country: BR (occurrence: BR)
  Receive Date: 20121203
  Receipt Date: 20121203
  Transmission Date: 20130627
  Serious: Yes (Death, Other)
  Sender: FDA-Public Use
  Company Number: BR-ABBOTT-12P-020-1015645-00

PATIENT
  Age: 61 None
  Sex: Male

DRUGS (3)
  1. DEPAKENE [Suspect]
     Indication: CONVULSION PROPHYLAXIS
     Dosage: 3 tablets per day
     Route: 048
     Dates: start: 201110
  2. DEPAKENE [Suspect]
     Route: 048
     Dates: start: 201209
  3. DEPAKENE [Suspect]
     Indication: CONVULSION PROPHYLAXIS
     Route: 048
     Dates: start: 201209

REACTIONS (9)
  - Pneumonia [Fatal]
  - Brain neoplasm [Fatal]
  - Brain oedema [Not Recovered/Not Resolved]
  - Hemiplegia [Unknown]
  - Faecal incontinence [Not Recovered/Not Resolved]
  - Urinary incontinence [Not Recovered/Not Resolved]
  - Brain cancer metastatic [Unknown]
  - Dysphagia [Not Recovered/Not Resolved]
  - Immunodeficiency [Unknown]
